FAERS Safety Report 18327385 (Version 1)
Quarter: 2020Q3

REPORT INFORMATION
  Report Type: Report from Study
  Country: AU (occurrence: AU)
  Receive Date: 20200929
  Receipt Date: 20200929
  Transmission Date: 20201103
  Serious: Yes (Hospitalization)
  Sender: FDA-Public Use
  Company Number: AU-PURDUE PHARMA-GBR-2019-0071026

PATIENT
  Age: 75 Year
  Sex: Male
  Weight: 78 kg

DRUGS (3)
  1. TRAMETINIB [Suspect]
     Active Substance: TRAMETINIB
     Indication: NEOPLASM MALIGNANT
     Dosage: 1 MG, DAILY
     Route: 048
     Dates: start: 20170720, end: 20171115
  2. RIBOCICLIB. [Suspect]
     Active Substance: RIBOCICLIB
     Indication: NEOPLASM MALIGNANT
     Dosage: 200 MG, DAILY
     Route: 048
     Dates: start: 20170727, end: 20171117
  3. MS CONTIN [Suspect]
     Active Substance: MORPHINE SULFATE
     Indication: ABDOMINAL PAIN
     Dosage: 15 MG, BID
     Route: 048
     Dates: start: 20170720

REACTIONS (2)
  - Small intestinal obstruction [Recovered/Resolved]
  - Constipation [Recovered/Resolved]

NARRATIVE: CASE EVENT DATE: 20171109
